FAERS Safety Report 6709245-9 (Version None)
Quarter: 2010Q2

REPORT INFORMATION
  Report Type: 
  Country: None (occurrence: None)
  Receive Date: 20100429
  Receipt Date: 20100422
  Transmission Date: 20101027
  Serious: Yes (Hospitalization)
  Sender: FDA-Public Use
  Company Number: 2010SP023515

PATIENT
  Age: 35 Year
  Sex: Female

DRUGS (7)
  1. TEMODAL [Suspect]
     Indication: GLIOBLASTOMA MULTIFORME
     Dosage: 140 MG; 270MG
     Dates: start: 20100205
  2. TEMODAL [Suspect]
     Indication: GLIOBLASTOMA MULTIFORME
     Dosage: 140 MG; 270MG
     Dates: start: 20100416
  3. DEXAMETHASONE [Concomitant]
  4. ONDANSETRON HYDROCHLORIDE [Concomitant]
  5. BACTRIM [Concomitant]
  6. KEPPRA [Concomitant]
  7. VALPROATE SODIUM [Concomitant]

REACTIONS (2)
  - DYSPEPSIA [None]
  - VOMITING [None]
